FAERS Safety Report 10347604 (Version 1)
Quarter: 2014Q3

REPORT INFORMATION
  Report Type: Spontaneous
  Country: CH (occurrence: CH)
  Receive Date: 20140729
  Receipt Date: 20140729
  Transmission Date: 20150326
  Serious: Yes (Life-Threatening, Hospitalization, Other)
  Sender: FDA-Public Use
  Company Number: CH-WATSON-2014-16078

PATIENT
  Age: 45 Year
  Sex: Female

DRUGS (3)
  1. PRAZEPAM [Suspect]
     Active Substance: PRAZEPAM
     Indication: SUICIDE ATTEMPT
     Dosage: UNK
     Route: 065
  2. MEPROBAMATE (WATSON LABORATORIES) (MEPROBAMATE) TABLET [Suspect]
     Active Substance: MEPROBAMATE
     Indication: SUICIDE ATTEMPT
     Dosage: UNK
     Route: 065
  3. DULOXETINE (UNKNOWN) [Suspect]
     Active Substance: DULOXETINE
     Indication: SUICIDE ATTEMPT
     Dosage: UNK
     Route: 065

REACTIONS (7)
  - Intentional overdose [None]
  - Coma [Recovered/Resolved]
  - Respiratory acidosis [Recovered/Resolved]
  - Suicide attempt [Recovered/Resolved]
  - Overdose [Recovered/Resolved]
  - Circulatory collapse [Recovered/Resolved]
  - Continuous haemodiafiltration [None]
